FAERS Safety Report 5508347-2 (Version None)
Quarter: 2007Q4

REPORT INFORMATION
  Report Type: 
  Country: None (occurrence: None)
  Receive Date: 20071106
  Receipt Date: 20071025
  Transmission Date: 20080405
  Serious: Yes (Life-Threatening, Hospitalization)
  Sender: FDA-Public Use
  Company Number: US-GENENTECH-250378

PATIENT
  Sex: Female
  Weight: 61 kg

DRUGS (14)
  1. BEVACIZUMAB [Suspect]
     Indication: OVARIAN CANCER
     Dosage: 590 MG, DAYS 1+15
     Dates: start: 20070701
  2. TOPOTECAN [Suspect]
     Indication: OVARIAN CANCER
     Dosage: 7 MG, UNK
  3. DARBEPOETIN ALFA [Concomitant]
     Indication: DRUG USE FOR UNKNOWN INDICATION
  4. NEUPOGEN [Concomitant]
     Indication: DRUG USE FOR UNKNOWN INDICATION
  5. CALCIUM [Concomitant]
     Indication: DRUG USE FOR UNKNOWN INDICATION
  6. SYNTHROID [Concomitant]
     Indication: DRUG USE FOR UNKNOWN INDICATION
  7. GLUCOSAMINE [Concomitant]
     Indication: DRUG USE FOR UNKNOWN INDICATION
  8. CHONDROITIN [Concomitant]
     Indication: DRUG USE FOR UNKNOWN INDICATION
  9. VYTORIN [Concomitant]
     Indication: DRUG USE FOR UNKNOWN INDICATION
  10. NEULASTA [Concomitant]
     Indication: DRUG USE FOR UNKNOWN INDICATION
  11. COMPAZINE [Concomitant]
     Indication: DRUG USE FOR UNKNOWN INDICATION
  12. ATENOLOL [Concomitant]
     Indication: DRUG USE FOR UNKNOWN INDICATION
  13. NEUPOGEN [Concomitant]
     Indication: DRUG USE FOR UNKNOWN INDICATION
  14. MIRALAX [Concomitant]
     Indication: DRUG USE FOR UNKNOWN INDICATION

REACTIONS (3)
  - INTESTINAL OBSTRUCTION [None]
  - NEUTROPENIA [None]
  - THROMBOCYTOPENIA [None]
